FAERS Safety Report 8265005-1 (Version None)
Quarter: 2012Q2

REPORT INFORMATION
  Report Type: 
  Country: None (occurrence: None)
  Receive Date: 20120406
  Receipt Date: 20120326
  Transmission Date: 20120825
  Serious: Yes (Other)
  Sender: FDA-Public Use
  Company Number: US-ROCHE-1027061

PATIENT
  Sex: Female
  Weight: 95.34 kg

DRUGS (4)
  1. ACCUTANE [Suspect]
     Route: 065
     Dates: start: 19860101
  2. ACCUTANE [Suspect]
     Indication: ACNE
     Route: 065
     Dates: start: 19780101
  3. ACCUTANE [Suspect]
     Route: 065
     Dates: start: 19790101
  4. ACCUTANE [Suspect]
     Route: 065
     Dates: start: 19840101

REACTIONS (7)
  - RECTAL POLYP [None]
  - HAEMORRHOIDS [None]
  - INJURY [None]
  - PROCTITIS ULCERATIVE [None]
  - INFLAMMATORY BOWEL DISEASE [None]
  - ANAL FISSURE [None]
  - DEPRESSION [None]
